FAERS Safety Report 7532151-7 (Version None)
Quarter: 2011Q2

REPORT INFORMATION
  Report Type: 
  Country: None (occurrence: None)
  Receive Date: 20110608
  Receipt Date: 20110601
  Transmission Date: 20111010
  Serious: No
  Sender: FDA-Public Use
  Company Number: US-PFIZER INC-2011119391

PATIENT
  Sex: Male

DRUGS (3)
  1. ATACAND [Concomitant]
     Dosage: 32 MG, UNK
  2. SERTRALINE [Concomitant]
     Dosage: 100 MG, UNK
  3. SUTENT [Suspect]
     Dosage: 50 MG, 1X/DAY
     Route: 048

REACTIONS (1)
  - NAUSEA [None]
